FAERS Safety Report 11507599 (Version 5)
Quarter: 2015Q4

REPORT INFORMATION
  Report Type: Spontaneous
  Country: ES (occurrence: ES)
  Receive Date: 20150915
  Receipt Date: 20151224
  Transmission Date: 20160304
  Serious: Yes (Hospitalization)
  Sender: FDA-Public Use
  Company Number: ES-CELGENE-ESP-2015092089

PATIENT
  Age: 37 Year
  Sex: Female

DRUGS (2)
  1. ABRAXANE [Suspect]
     Active Substance: PACLITAXEL
     Indication: ADENOCARCINOMA PANCREAS
     Route: 065
     Dates: start: 20150221, end: 201508
  2. GEMCITABINE [Concomitant]
     Active Substance: GEMCITABINE\GEMCITABINE HYDROCHLORIDE
     Indication: ADENOCARCINOMA PANCREAS
     Route: 065
     Dates: start: 20150221, end: 201508

REACTIONS (10)
  - Tonsillitis [Unknown]
  - Alopecia [Unknown]
  - Thrombocytopenia [Unknown]
  - Haematuria [Unknown]
  - Nausea [Unknown]
  - Renal vein compression [Unknown]
  - Intestinal obstruction [Unknown]
  - Constipation [Unknown]
  - Deep vein thrombosis [Unknown]
  - Pancreatic carcinoma metastatic [Unknown]

NARRATIVE: CASE EVENT DATE: 20150228
